FAERS Safety Report 10901319 (Version 1)
Quarter: 2015Q1

REPORT INFORMATION
  Report Type: Spontaneous
  Country: US (occurrence: None)
  Receive Date: 20150303
  Receipt Date: 20150303
  Transmission Date: 20150721
  Serious: Yes (Hospitalization)
  Sender: FDA-Public Use
  Company Number: 2015-10783

PATIENT
  Age: 82 Year
  Sex: Female
  Weight: 58 kg

DRUGS (3)
  1. VALSARTAN (VALSARTAN) [Concomitant]
     Active Substance: VALSARTAN
  2. VITAMINS /00067501/ (ASCORBIC ACID, ERGOCALCIFEROL, NICOTINAMIDE, RETINOL, RIBOFLAVIN, THIAMINE HYDROCHLORIDE) [Concomitant]
  3. EYLEA [Suspect]
     Active Substance: AFLIBERCEPT
     Indication: AGE-RELATED MACULAR DEGENERATION
     Dosage: UNK, INTRAOCULAR?
     Route: 031
     Dates: start: 201409

REACTIONS (1)
  - Hypertension [None]

NARRATIVE: CASE EVENT DATE: 2014
